FAERS Safety Report 6284343-5 (Version None)
Quarter: 2009Q3

REPORT INFORMATION
  Report Type: 
  Country: None (occurrence: None)
  Receive Date: 20090723
  Receipt Date: 20090713
  Transmission Date: 20100115
  Serious: Yes (Other)
  Sender: FDA-Public Use
  Company Number: 2009AP002876

PATIENT
  Age: 75 Year
  Sex: Female

DRUGS (1)
  1. TICLOPIDINE HCL [Suspect]
     Indication: ANTICOAGULANT THERAPY
     Dosage: 250 MG;BID;PO
     Route: 048
     Dates: start: 20081114

REACTIONS (4)
  - DIARRHOEA [None]
  - HYPERSENSITIVITY [None]
  - STOMATITIS [None]
  - WEIGHT DECREASED [None]
